FAERS Safety Report 21936878 (Version 1)
Quarter: 2023Q1

REPORT INFORMATION
  Report Type: Spontaneous
  Country: US (occurrence: US)
  Receive Date: 20230201
  Receipt Date: 20230201
  Transmission Date: 20230417
  Serious: No
  Sender: FDA-Public Use
  Company Number: US-AMGEN-USASP2022228485

PATIENT
  Age: 30 Year
  Sex: Female

DRUGS (9)
  1. ENBREL [Suspect]
     Active Substance: ETANERCEPT
     Indication: Ankylosing spondylitis
     Dosage: 50 MILLIGRAM, QWK
     Route: 058
     Dates: start: 20221014
  2. Flac [Concomitant]
     Dosage: 0.01 PERCENT
  3. GARLIC OIL [Concomitant]
     Active Substance: GARLIC OIL
     Dosage: 1000 MILLIGRAM
  4. TEA LEAF [Concomitant]
     Active Substance: TEA LEAF
     Dosage: 150 MILLIGRAM
  5. JUNEL FE 1/20 [Concomitant]
     Active Substance: ETHINYL ESTRADIOL\NORETHINDRONE ACETATE
     Dosage: 1/2 TAB 1 TO 20 MILLIGRAM-M
  6. NABUMETONE [Concomitant]
     Active Substance: NABUMETONE
     Dosage: 750 MILLIGRAM
  7. HERBALS\TURMERIC [Concomitant]
     Active Substance: HERBALS\TURMERIC
     Dosage: 500 MILLIGRAM
  8. VITAMIN C [Concomitant]
     Active Substance: ASCORBIC ACID
     Dosage: LIQUID
  9. WOMEN^S MULTIVITE [Concomitant]
     Dosage: WOMEN^S 50+ M TAB

REACTIONS (2)
  - Migraine [Not Recovered/Not Resolved]
  - Increased appetite [Not Recovered/Not Resolved]

NARRATIVE: CASE EVENT DATE: 20221001
